FAERS Safety Report 6057570-X (Version None)
Quarter: 2009Q1

REPORT INFORMATION
  Report Type: 
  Country: None (occurrence: None)
  Receive Date: 20090126
  Receipt Date: 20090112
  Transmission Date: 20090719
  Serious: Yes (Hospitalization)
  Sender: FDA-Public Use
  Company Number: TRP_06038_2009

PATIENT
  Age: 46 Year
  Sex: Female

DRUGS (2)
  1. RIBASPHERE [Suspect]
     Indication: HEPATITIS C
     Dates: start: 20081114
  2. PEG-INTRON [Suspect]
     Indication: HEPATITIS C
     Dosage: (SUBCUTANEOUS)
     Route: 058
     Dates: start: 20081114

REACTIONS (7)
  - ANAEMIA [None]
  - ASTHENIA [None]
  - DELIRIUM [None]
  - FALL [None]
  - HYPOTENSION [None]
  - VOMITING [None]
  - WHITE BLOOD CELL COUNT DECREASED [None]
